FAERS Safety Report 9757309 (Version 2)
Quarter: 2014Q1

REPORT INFORMATION
  Report Type: Report from Study
  Country: PE (occurrence: PE)
  Receive Date: 20131214
  Receipt Date: 20140227
  Transmission Date: 20141002
  Serious: Yes (Other)
  Sender: FDA-Public Use
  Company Number: PE-ROCHE-1318709

PATIENT
  Age: 87 Year
  Sex: Male

DRUGS (1)
  1. MABTHERA [Suspect]
     Indication: LYMPHOMA
     Route: 042
     Dates: start: 20130701, end: 20131015

REACTIONS (1)
  - Adenocarcinoma gastric [Not Recovered/Not Resolved]
